FAERS Safety Report 8609242-2 (Version None)
Quarter: 2012Q3

REPORT INFORMATION
  Report Type: 
  Country: None (occurrence: None)
  Receive Date: 20120821
  Receipt Date: 20120814
  Transmission Date: 20120928
  Serious: Yes (Hospitalization)
  Sender: FDA-Public Use
  Company Number: NZ-B.I. PHARMACEUTICALS,INC./RIDGEFIELD-2012-AU-01429AU

PATIENT
  Age: 77 Year
  Sex: Female

DRUGS (7)
  1. AMOXICILLIN AND CLAVULANATE POTASSIUM [Suspect]
     Indication: POST PROCEDURAL INFECTION
     Route: 048
     Dates: start: 20111117
  2. TIMOLOL MALEATE [Concomitant]
     Dosage: 1 ML
     Route: 047
  3. PRADAXA [Suspect]
     Indication: ATRIAL FIBRILLATION
     Dates: start: 20111030, end: 20111122
  4. PRADAXA [Suspect]
     Indication: ATRIAL FLUTTER
  5. METOPROLOL TARTRATE [Concomitant]
     Indication: ATRIAL FLUTTER
  6. LATANOPROST [Concomitant]
     Dosage: 5 ML
     Route: 047
  7. METOPROLOL TARTRATE [Concomitant]
     Indication: ATRIAL FIBRILLATION
     Dosage: 23.75 MG
     Route: 048
     Dates: start: 20111030

REACTIONS (2)
  - HEPATITIS CHOLESTATIC [None]
  - JAUNDICE [None]
